FAERS Safety Report 6457370-2 (Version None)
Quarter: 2009Q4

REPORT INFORMATION
  Report Type: 
  Country: None (occurrence: None)
  Receive Date: 20091119
  Receipt Date: 20090721
  Transmission Date: 20100525
  Serious: Yes (Hospitalization)
  Sender: FDA-Public Use
  Company Number: WAES 0911USA02619

PATIENT
  Age: 43 Year
  Sex: Female

DRUGS (3)
  1. CAP VORINOSTAT UNK [Suspect]
     Indication: GRAFT VERSUS HOST DISEASE
     Dosage: 100 MG/BID/PO
     Route: 048
     Dates: start: 20090501, end: 20090625
  2. TACROLIMUS UNK [Suspect]
     Indication: GRAFT VERSUS HOST DISEASE
     Dosage: UNK/UNK/UNK
     Route: 065
  3. MYCOPHENOLATE SODIUM UNK [Suspect]
     Indication: GRAFT VERSUS HOST DISEASE
     Dosage: UNK/UNK/UNK

REACTIONS (7)
  - ARTHRALGIA [None]
  - BACILLUS INFECTION [None]
  - BACK PAIN [None]
  - BLOOD CULTURE POSITIVE [None]
  - BONE MARROW TRANSPLANT [None]
  - STAPHYLOCOCCAL INFECTION [None]
  - TRANSFUSION REACTION [None]
